FAERS Safety Report 21778701 (Version 1)
Quarter: 2022Q4

REPORT INFORMATION
  Report Type: Spontaneous
  Country: US (occurrence: US)
  Receive Date: 20221226
  Receipt Date: 20221226
  Transmission Date: 20230112
  Serious: No
  Sender: FDA-Public Use
  Company Number: US-MIGRATION_PFIZER-2022BHV003258

PATIENT

DRUGS (2)
  1. NURTEC ODT [Suspect]
     Active Substance: RIMEGEPANT SULFATE
     Indication: Prophylaxis
     Route: 065
  2. QULIPTA [Concomitant]
     Active Substance: ATOGEPANT
     Indication: Migraine
     Route: 065
     Dates: start: 2022

REACTIONS (3)
  - Drug ineffective [Unknown]
  - Migraine [Unknown]
  - Constipation [Unknown]
